FAERS Safety Report 7543773-1 (Version None)
Quarter: 2011Q2

REPORT INFORMATION
  Report Type: 
  Country: None (occurrence: None)
  Receive Date: 20110613
  Receipt Date: 20040624
  Transmission Date: 20111010
  Serious: Yes (Hospitalization)
  Sender: FDA-Public Use
  Company Number: PHHO2004JP09131

PATIENT
  Sex: Female
  Weight: 54 kg

DRUGS (3)
  1. DEPAS [Concomitant]
     Dates: start: 20030320
  2. LANDEL [Concomitant]
     Dates: start: 20030320
  3. DIOVAN [Suspect]
     Indication: HYPERTENSION
     Dosage: 80 MG, QD
     Route: 048
     Dates: start: 20030320

REACTIONS (4)
  - HYPERTENSIVE ENCEPHALOPATHY [None]
  - ALTERED STATE OF CONSCIOUSNESS [None]
  - CEREBRAL INFARCTION [None]
  - HEADACHE [None]
